FAERS Safety Report 7592948-4 (Version None)
Quarter: 2011Q3

REPORT INFORMATION
  Report Type: 
  Country: None (occurrence: None)
  Receive Date: 20110706
  Receipt Date: 20110609
  Transmission Date: 20111222
  Serious: Yes (Hospitalization)
  Sender: FDA-Public Use
  Company Number: US-GLAXOSMITHKLINE-A0870508A

PATIENT
  Sex: Female

DRUGS (1)
  1. AVANDIA [Suspect]
     Indication: TYPE 2 DIABETES MELLITUS
     Dosage: 4MG PER DAY
     Route: 048
     Dates: start: 20001001, end: 20051101

REACTIONS (8)
  - DEEP VEIN THROMBOSIS [None]
  - ASTHENIA [None]
  - VERTIGO [None]
  - MYOCARDIAL INFARCTION [None]
  - DIZZINESS [None]
  - BALANCE DISORDER [None]
  - PULMONARY EMBOLISM [None]
  - FALL [None]
